FAERS Safety Report 8072175-7 (Version None)
Quarter: 2012Q1

REPORT INFORMATION
  Report Type: 
  Country: None (occurrence: None)
  Receive Date: 20120126
  Receipt Date: 20120118
  Transmission Date: 20120608
  Serious: Yes (Other)
  Sender: FDA-Public Use
  Company Number: US-US-EMD SERONO, INC.-7107858

PATIENT
  Sex: Female

DRUGS (3)
  1. EFFEXOR [Concomitant]
  2. CONCERTA [Concomitant]
  3. REBIF [Suspect]
     Indication: PRODUCT USED FOR UNKNOWN INDICATION
     Route: 058
     Dates: start: 20111013

REACTIONS (2)
  - CHOLECYSTECTOMY [None]
  - PAIN [None]
